FAERS Safety Report 8665040 (Version 2)
Quarter: 2012Q4

REPORT INFORMATION
  Report Type: 
  Country: FR (occurrence: FR)
  Receive Date: 20120716
  Receipt Date: 20120925
  Transmission Date: 20130627
  Serious: Yes (Other)
  Sender: FDA-Public Use
  Company Number: FR-AMGEN-FRASP2012042204

PATIENT
  Age: 52 Year
  Sex: Female
  Weight: 90 kg

DRUGS (3)
  1. ENBREL [Suspect]
     Indication: PRODUCT USED FOR UNKNOWN INDICATION
     Dosage: UNK
     Dates: start: 200803, end: 20120703
  2. IMETH [Concomitant]
     Dosage: UNK DF, weekly
  3. SPECIAFOLDINE [Concomitant]
     Dosage: weekly

REACTIONS (1)
  - Uveitis [Recovered/Resolved]
